FAERS Safety Report 6522014-8 (Version None)
Quarter: 2009Q4

REPORT INFORMATION
  Report Type: 
  Country: None (occurrence: None)
  Receive Date: 20091224
  Receipt Date: 20091221
  Transmission Date: 20100525
  Serious: Yes (Death)
  Sender: FDA-Public Use
  Company Number: 2009AC000114

PATIENT
  Age: 58 Year
  Sex: Male

DRUGS (14)
  1. DIGOXIN [Suspect]
     Dosage: 0.25 MG; QOD; PO
     Route: 048
     Dates: start: 20070501, end: 20071001
  2. COMBIVENT [Concomitant]
  3. COREG [Concomitant]
  4. ALLOPURINOL [Concomitant]
  5. SIMVASTATIN [Concomitant]
  6. ALBUTEROL [Concomitant]
  7. ASPIRIN [Concomitant]
  8. B COMPLEX ELX [Concomitant]
  9. PHOSRENAL [Concomitant]
  10. REGLAN [Concomitant]
  11. RENAGEL [Concomitant]
  12. TRICOR [Concomitant]
  13. LANTUS [Concomitant]
  14. LOVENOX [Concomitant]

REACTIONS (6)
  - ECONOMIC PROBLEM [None]
  - INFLUENZA IMMUNISATION [None]
  - MULTIPLE INJURIES [None]
  - NAUSEA [None]
  - SUDDEN CARDIAC DEATH [None]
  - VOMITING [None]
